FAERS Safety Report 9542328 (Version 5)
Quarter: 2013Q4

REPORT INFORMATION
  Report Type: Report from Study
  Country: US (occurrence: US)
  Receive Date: 20130923
  Receipt Date: 20131223
  Transmission Date: 20140711
  Serious: Yes (Disabling, Other)
  Sender: FDA-Public Use
  Company Number: US-JNJFOC-20130909065

PATIENT
  Age: 35 Year
  Sex: Female
  Weight: 79.38 kg

DRUGS (17)
  1. REMICADE [Suspect]
     Indication: RHEUMATOID ARTHRITIS
     Route: 042
     Dates: start: 201011
  2. REMICADE [Suspect]
     Indication: RHEUMATOID ARTHRITIS
     Route: 042
     Dates: start: 2011
  3. DICLOFENAC [Concomitant]
     Indication: RHEUMATOID ARTHRITIS
     Route: 061
  4. METHOTREXATE [Concomitant]
     Indication: RHEUMATOID ARTHRITIS
     Route: 058
     Dates: start: 201003
  5. DAYPRO [Concomitant]
     Indication: INFLAMMATION
     Dosage: STARTED A YEAR AGO.
     Route: 048
     Dates: start: 2009
  6. DAYPRO [Concomitant]
     Indication: RHEUMATOID ARTHRITIS
     Dosage: STARTED A YEAR AGO.
     Route: 048
     Dates: start: 2009
  7. VICODIN [Concomitant]
     Indication: RHEUMATOID ARTHRITIS
     Dosage: STARTED ^32/12^ YEARS. TAKEN AS NEEDED
     Route: 048
  8. GABAPENTIN [Concomitant]
     Indication: RHEUMATOID ARTHRITIS
     Route: 061
  9. LIDOCAINE [Concomitant]
     Indication: RHEUMATOID ARTHRITIS
     Route: 061
  10. LISINOPRIL [Concomitant]
     Indication: HYPERTENSION
     Route: 065
     Dates: start: 201305
  11. CELEXA [Concomitant]
     Indication: DEPRESSION
     Route: 065
     Dates: start: 200509
  12. WELLBUTRIN [Concomitant]
     Indication: DEPRESSION
     Route: 065
     Dates: start: 200509
  13. OXAPROZIN [Concomitant]
     Indication: ARTHRALGIA
     Route: 065
     Dates: start: 201003
  14. BENADRYL [Concomitant]
     Indication: MULTIPLE ALLERGIES
     Route: 065
     Dates: start: 2010
  15. VICODIN [Concomitant]
     Indication: ARTHRALGIA
     Route: 065
     Dates: start: 2010
  16. AMBIEN [Concomitant]
     Dosage: FOR 10 HOURS
     Route: 065
  17. PROTONIX [Concomitant]
     Indication: GASTROOESOPHAGEAL REFLUX DISEASE
     Route: 065

REACTIONS (2)
  - Nasal septum deviation [Recovering/Resolving]
  - Chronic sinusitis [Not Recovered/Not Resolved]
